FAERS Safety Report 4438749-7 (Version None)
Quarter: 2004Q3

REPORT INFORMATION
  Report Type: 
  Country: None (occurrence: None)
  Receive Date: 20040830
  Receipt Date: 20040817
  Transmission Date: 20050211
  Serious: Yes (Hospitalization)
  Sender: FDA-Public Use
  Company Number: 040818-0000411

PATIENT
  Age: 51 Year
  Sex: Female
  Weight: 58.9676 kg

DRUGS (9)
  1. PANHEMATIN [Suspect]
     Indication: PORPHYRIA ACUTE
     Dosage: 40 MG;QD;IV
     Route: 042
     Dates: start: 20040726, end: 20040731
  2. FOSAMAX [Concomitant]
  3. ALDACTONE [Concomitant]
  4. KYTRIL [Concomitant]
  5. MAXALT [Concomitant]
  6. AMBIEN [Concomitant]
  7. LEXAPRO [Concomitant]
  8. PROTONIX [Concomitant]
  9. ZOFRAN [Concomitant]

REACTIONS (2)
  - BACTERIAL SEPSIS [None]
  - STENOTROPHOMONAS INFECTION [None]
